FAERS Safety Report 18847575 (Version 1)
Quarter: 2021Q1

REPORT INFORMATION
  Report Type: Spontaneous
  Country: JP (occurrence: JP)
  Receive Date: 20210204
  Receipt Date: 20210204
  Transmission Date: 20210419
  Serious: Yes (Other)
  Sender: FDA-Public Use
  Company Number: JP-BAXTER-2021BAX002318

PATIENT
  Age: 53 Year
  Sex: Male

DRUGS (17)
  1. HOLOXAN [Suspect]
     Active Substance: IFOSFAMIDE
     Dosage: 5TH AI POSTOPERATIVE CYCLE
     Route: 041
     Dates: start: 20200901, end: 20200905
  2. METOCLOPRAMIDE. [Concomitant]
     Active Substance: METOCLOPRAMIDE
     Indication: PROPHYLAXIS
     Route: 065
  3. UROMITEXAN 400 MG [Suspect]
     Active Substance: MESNA
     Dosage: 4TH AI POSTOPERATIVE CYCLE
     Route: 065
  4. ACTIT [Concomitant]
     Indication: PROPHYLAXIS
     Route: 065
     Dates: start: 20200801, end: 20200908
  5. HOLOXAN [Suspect]
     Active Substance: IFOSFAMIDE
     Dosage: 4TH AI POSTOPERATIVE CYCLE
     Route: 041
  6. ALOXI [Concomitant]
     Active Substance: PALONOSETRON HYDROCHLORIDE
     Indication: PROPHYLAXIS
     Route: 065
     Dates: start: 20200901
  7. DOXIL [Suspect]
     Active Substance: DOXORUBICIN HYDROCHLORIDE
     Indication: SOFT TISSUE SARCOMA
     Dosage: 1?3 AI PREOPERATIVE CYCLES
     Route: 041
  8. DOXIL [Suspect]
     Active Substance: DOXORUBICIN HYDROCHLORIDE
     Dosage: 4TH AI POSTOPERATIVE CYCLE
     Route: 041
  9. MAGNESIUM OXIDE. [Concomitant]
     Active Substance: MAGNESIUM OXIDE
     Indication: PROPHYLAXIS
     Route: 065
  10. LEVOFLOXACIN HEMIHYDRATE [Concomitant]
     Active Substance: LEVOFLOXACIN
     Indication: PROPHYLAXIS
     Route: 065
  11. HOLOXAN [Suspect]
     Active Substance: IFOSFAMIDE
     Indication: SOFT TISSUE SARCOMA
     Dosage: 1?3 AI PREOPERATIVE CYCLES
     Route: 041
  12. DIAMOX SEQUELS [Concomitant]
     Active Substance: ACETAZOLAMIDE
     Indication: PROPHYLAXIS
     Route: 065
     Dates: start: 20200831, end: 20200908
  13. UROMITEXAN 400 MG [Suspect]
     Active Substance: MESNA
     Indication: PRODUCT USED FOR UNKNOWN INDICATION
     Dosage: 1?3 AI PREOPERATIVE CYCLES
     Route: 065
  14. UROMITEXAN 400 MG [Suspect]
     Active Substance: MESNA
     Dosage: 5TH AI POSTOPERATIVE CYCLE
     Route: 065
     Dates: start: 20200901, end: 20200905
  15. CANDESARTAN CILEXETIL. [Concomitant]
     Active Substance: CANDESARTAN CILEXETIL
     Indication: PROPHYLAXIS
     Route: 065
  16. DOXIL [Suspect]
     Active Substance: DOXORUBICIN HYDROCHLORIDE
     Dosage: 5TH AI POSTOPERATIVE CYCLE
     Route: 041
     Dates: start: 20200901, end: 20200902
  17. DEXART [Concomitant]
     Active Substance: DEXAMETHASONE SODIUM PHOSPHATE
     Indication: PROPHYLAXIS
     Route: 065
     Dates: start: 20200901, end: 20200905

REACTIONS (2)
  - Neutrophil count decreased [Recovered/Resolved]
  - Neutrophil count decreased [Recovered/Resolved]

NARRATIVE: CASE EVENT DATE: 20200911
